FAERS Safety Report 8449305 (Version 4)
Quarter: 2013Q1

REPORT INFORMATION
  Report Type: Report from Study
  Country: US (occurrence: US)
  Receive Date: 20120308
  Receipt Date: 20130318
  Transmission Date: 20140127
  Serious: Yes (Hospitalization, Other)
  Sender: FDA-Public Use
  Company Number: US-PFIZER INC-2010150645

PATIENT
  Age: 58 Year
  Sex: Female
  Weight: 83.45 kg

DRUGS (19)
  1. LIPITOR [Suspect]
     Indication: BLOOD CHOLESTEROL INCREASED
     Dosage: 40 MG, 1X/DAY
     Route: 048
     Dates: start: 2001
  2. XANAX [Suspect]
     Indication: ANXIETY
     Dosage: 1 MG, 1X/DAY
     Dates: start: 2000
  3. XANAX [Suspect]
     Indication: SLEEP DISORDER
  4. XANAX [Suspect]
     Indication: PANIC ATTACK
  5. KLOR-CON [Concomitant]
     Dosage: UNK
  6. NIACIN [Concomitant]
     Dosage: UNK
  7. FISH OIL [Concomitant]
     Dosage: UNK
  8. CALCIUM [Concomitant]
     Dosage: UNK
  9. LISINOPRIL [Concomitant]
     Dosage: 5 MG, 1X/DAY
     Dates: start: 2004
  10. TRAZODONE [Concomitant]
     Indication: SLEEP DISORDER
     Dosage: 50 MG, 1X/DAY
     Dates: start: 2004
  11. PRILOSEC [Concomitant]
     Indication: GASTROOESOPHAGEAL REFLUX DISEASE
     Dosage: 20 MG, 1X/DAY
     Dates: start: 2004
  12. FUROSEMIDE [Concomitant]
     Indication: FLUID IMBALANCE
     Dosage: 20 MG, 2X/DAY
     Dates: start: 2004
  13. FERROUS SULPHATE [Concomitant]
     Indication: BLOOD IRON DECREASED
     Dosage: 325 MG, 1X/DAY
     Dates: start: 201211
  14. METFORMIN [Concomitant]
     Indication: BLOOD GLUCOSE ABNORMAL
     Dosage: 500 MG, 1X/DAY
  15. GABAPENTIN [Concomitant]
     Indication: NEUROPATHY PERIPHERAL
     Dosage: 600 MG, 3X/DAY
  16. METOPROLOL [Concomitant]
     Indication: CARDIAC DISORDER
     Dosage: 50 MG, 1X/DAY
     Dates: start: 2000
  17. PENTOXIFYLLINE [Concomitant]
     Indication: ANGIOPATHY
     Dosage: 400 MG, 3X/DAY
  18. POTASSIUM CHLORIDE [Concomitant]
     Dosage: 20 MEQ, 2X/DAY
     Route: 048
  19. WARFARIN [Concomitant]
     Indication: ANTICOAGULANT THERAPY
     Dosage: UNK, EVERY OTHER DAY
     Dates: start: 201208

REACTIONS (9)
  - Localised infection [Unknown]
  - Cerebrovascular accident [Unknown]
  - Diabetes mellitus [Unknown]
  - Pneumonia [Unknown]
  - Bronchitis [Unknown]
  - Sinus congestion [Unknown]
  - Sinusitis [Unknown]
  - Sedation [Unknown]
  - Drug ineffective [Unknown]
